FAERS Safety Report 12393865 (Version 1)
Quarter: 2016Q2

REPORT INFORMATION
  Report Type: Spontaneous
  Country: US (occurrence: US)
  Receive Date: 20160523
  Receipt Date: 20160523
  Transmission Date: 20160815
  Serious: No
  Sender: FDA-Public Use
  Company Number: US-BAUSCH-BL-2016-006695

PATIENT
  Age: 61 Year
  Sex: Male
  Weight: 99.88 kg

DRUGS (2)
  1. MESTINON [Suspect]
     Active Substance: PYRIDOSTIGMINE BROMIDE
     Indication: ATRIAL FIBRILLATION
  2. MESTINON [Suspect]
     Active Substance: PYRIDOSTIGMINE BROMIDE
     Indication: VENTRICULAR FIBRILLATION
     Route: 048
     Dates: start: 201505, end: 20160315

REACTIONS (4)
  - Off label use [Recovered/Resolved]
  - Hyperhidrosis [Recovered/Resolved]
  - Upper respiratory tract congestion [Recovered/Resolved]
  - Upper respiratory tract infection [Recovering/Resolving]

NARRATIVE: CASE EVENT DATE: 201505
